FAERS Safety Report 7310703-7 (Version None)
Quarter: 2011Q1

REPORT INFORMATION
  Report Type: 
  Country: None (occurrence: None)
  Receive Date: 20110224
  Receipt Date: 20100129
  Transmission Date: 20110831
  Serious: No
  Sender: FDA-Public Use
  Company Number: US-BRISTOL-MYERS SQUIBB COMPANY-14946974

PATIENT
  Age: 58 Year
  Sex: Female

DRUGS (1)
  1. LYSODREN [Suspect]
     Indication: ADRENAL CARCINOMA
     Route: 048
     Dates: start: 20090901

REACTIONS (2)
  - LIPIDS INCREASED [None]
  - HYPERCHOLESTEROLAEMIA [None]
